FAERS Safety Report 13206174 (Version 1)
Quarter: 2017Q1

REPORT INFORMATION
  Report Type: Spontaneous
  Country: US (occurrence: US)
  Receive Date: 20170208
  Receipt Date: 20170208
  Transmission Date: 20170428
  Serious: Yes (Hospitalization)
  Sender: FDA-Public Use
  Company Number: None

PATIENT
  Age: 68 Year
  Sex: Male
  Weight: 102.3 kg

DRUGS (4)
  1. SPIRONOLACTONE. [Suspect]
     Active Substance: SPIRONOLACTONE
     Indication: HYPERTENSION
     Dosage: MG BID PO
     Route: 048
     Dates: start: 20160314, end: 20170105
  2. LOSARTAN. [Suspect]
     Active Substance: LOSARTAN
     Indication: HYPERTENSION
     Dosage: MG PO
     Route: 048
     Dates: start: 20160714, end: 20170105
  3. SPIRONOLACTONE. [Suspect]
     Active Substance: SPIRONOLACTONE
     Indication: CARDIAC FAILURE CONGESTIVE
     Dosage: MG BID PO
     Route: 048
     Dates: start: 20160314, end: 20170105
  4. LOSARTAN. [Suspect]
     Active Substance: LOSARTAN
     Indication: CARDIAC FAILURE CONGESTIVE
     Dosage: MG PO
     Route: 048
     Dates: start: 20160714, end: 20170105

REACTIONS (6)
  - Glycosylated haemoglobin increased [None]
  - Diarrhoea [None]
  - Diabetic nephropathy [None]
  - Acute kidney injury [None]
  - Urine analysis abnormal [None]
  - Hyperkalaemia [None]

NARRATIVE: CASE EVENT DATE: 20161231
